FAERS Safety Report 9853464 (Version 1)
Quarter: 2014Q1

REPORT INFORMATION
  Report Type: Spontaneous
  Country: GB (occurrence: GB)
  Receive Date: 20140129
  Receipt Date: 20140129
  Transmission Date: 20141002
  Serious: Yes (Other)
  Sender: FDA-Public Use
  Company Number: GB-MERCK-1401GBR012752

PATIENT
  Age: 51 Year
  Sex: Male
  Weight: 114.3 kg

DRUGS (9)
  1. SITAGLIPTIN PHOSPHATE [Suspect]
     Indication: DIABETES MELLITUS
     Dosage: 100 MG, QD
     Route: 048
     Dates: start: 20140106, end: 20140111
  2. FERROUS FUMARATE [Concomitant]
  3. GLICLAZIDE [Concomitant]
  4. LANTUS [Concomitant]
  5. METFORMIN [Concomitant]
  6. NAPROXEN [Concomitant]
  7. CHOLECALCIFEROL [Concomitant]
     Dosage: PRO D3
  8. RAMIPRIL [Concomitant]
  9. SIMVASTATIN [Concomitant]

REACTIONS (2)
  - Local swelling [Unknown]
  - Oedema peripheral [Unknown]
